FAERS Safety Report 8721470 (Version 4)
Quarter: 2014Q1

REPORT INFORMATION
  Report Type: Spontaneous
  Country: US (occurrence: US)
  Receive Date: 20120813
  Receipt Date: 20140204
  Transmission Date: 20141002
  Serious: Yes (Hospitalization)
  Sender: FDA-Public Use
  Company Number: US-ROCHE-1100238

PATIENT
  Age: 8 Year
  Sex: Male
  Weight: 26.79 kg

DRUGS (5)
  1. XOLAIR [Suspect]
     Indication: ASTHMA
     Dosage: LSAT DOSE PRIOT TO THE EVENT: 20/JUN/2012
     Route: 065
     Dates: start: 20090608, end: 20120801
  2. XOLAIR [Suspect]
     Indication: BRONCHOPULMONARY ASPERGILLOSIS ALLERGIC
     Route: 065
     Dates: start: 20120803, end: 20130703
  3. ADVAIR [Concomitant]
     Indication: ASTHMA
     Dosage: 2 PUFF
     Route: 065
     Dates: start: 20080503
  4. SINGULAIR [Concomitant]
     Indication: ASTHMA
     Route: 048
     Dates: start: 20100216
  5. CETRIZINE [Concomitant]

REACTIONS (6)
  - Anaphylactic reaction [Unknown]
  - Cough [Unknown]
  - Urticaria [Unknown]
  - Swelling [Unknown]
  - Wheezing [Unknown]
  - Vein disorder [Unknown]
